FAERS Safety Report 21618480 (Version 1)
Quarter: 2022Q4

REPORT INFORMATION
  Report Type: Other
  Country: None (occurrence: US)
  Receive Date: 20221119
  Receipt Date: 20221119
  Transmission Date: 20230113
  Serious: Yes (Other)
  Sender: FDA-Public Use
  Company Number: US-B.Braun Medical Inc.-2135071

PATIENT
  Age: 24 Month

DRUGS (6)
  1. ACETAMINOPHEN [Suspect]
     Active Substance: ACETAMINOPHEN
  2. LITHIUM CARBONATE [Suspect]
     Active Substance: LITHIUM CARBONATE
  3. TRAZODONE [Suspect]
     Active Substance: TRAZODONE HYDROCHLORIDE
  4. OXYCODONE [Suspect]
     Active Substance: OXYCODONE
  5. IBUPROFEN [Suspect]
     Active Substance: IBUPROFEN
  6. METOPROLOL [Suspect]
     Active Substance: METOPROLOL

REACTIONS (3)
  - Ataxia [Recovered/Resolved]
  - Delirium [Recovered/Resolved]
  - Agitation [Recovered/Resolved]
